FAERS Safety Report 5322946-2 (Version None)
Quarter: 2007Q2

REPORT INFORMATION
  Report Type: 
  Country: None (occurrence: None)
  Receive Date: 20070511
  Receipt Date: 20070504
  Transmission Date: 20071010
  Serious: Yes (Other)
  Sender: FDA-Public Use
  Company Number: GB-MERCK-0705GBR00024

PATIENT
  Age: 56 Year
  Sex: Male

DRUGS (4)
  1. DECADRON [Suspect]
     Route: 048
  2. CARBOPLATIN [Suspect]
     Indication: LUNG NEOPLASM MALIGNANT
     Route: 065
  3. GEMCITABINE [Suspect]
     Indication: LUNG NEOPLASM MALIGNANT
     Route: 065
  4. MOVICOL [Suspect]
     Indication: FAECALOMA
     Route: 065
     Dates: start: 20070309

REACTIONS (2)
  - BLOOD ALBUMIN DECREASED [None]
  - OEDEMA PERIPHERAL [None]
